FAERS Safety Report 8497743 (Version 2)
Quarter: 2012Q4

REPORT INFORMATION
  Report Type: Report from Study
  Country: FR (occurrence: FR)
  Receive Date: 20120406
  Receipt Date: 20120906
  Transmission Date: 20130627
  Serious: Yes (Hospitalization)
  Sender: FDA-Public Use
  Company Number: FR-JNJFOC-20120400192

PATIENT
  Age: 58 Year
  Sex: Female
  Weight: 60.5 kg

DRUGS (2)
  1. REMICADE [Suspect]
     Indication: COLITIS ULCERATIVE
     Route: 042
     Dates: start: 20101111, end: 20110816
  2. SOLUPRED [Concomitant]
     Indication: COLITIS ULCERATIVE
     Route: 048
     Dates: start: 20111012

REACTIONS (1)
  - Colitis ulcerative [Recovered/Resolved]
